FAERS Safety Report 9496420 (Version 1)
Quarter: 2013Q3

REPORT INFORMATION
  Report Type: Spontaneous
  Country: US (occurrence: US)
  Receive Date: 20130904
  Receipt Date: 20130904
  Transmission Date: 20140515
  Serious: Yes (Hospitalization, Other)
  Sender: FDA-Public Use
  Company Number: US-ASTRAZENECA-2013SE66333

PATIENT
  Age: 61 Year
  Sex: Female
  Weight: 89.8 kg

DRUGS (10)
  1. NEXIUM [Suspect]
     Indication: GASTROOESOPHAGEAL REFLUX DISEASE
     Route: 048
     Dates: start: 201305, end: 201306
  2. NEXIUM [Suspect]
     Indication: GASTROOESOPHAGEAL REFLUX DISEASE
     Route: 048
     Dates: start: 201305, end: 201306
  3. PRILOSEC OTC [Suspect]
     Route: 048
  4. PROTONIX [Concomitant]
  5. REQUIP [Concomitant]
     Indication: RESTLESS LEGS SYNDROME
     Route: 048
  6. TRANXENE [Concomitant]
     Indication: ANXIETY
     Route: 048
     Dates: start: 1988
  7. SYNTHROID [Concomitant]
     Indication: THYROIDECTOMY
     Route: 048
     Dates: start: 201304
  8. CALCITRIOL [Concomitant]
     Indication: CALCIUM IONISED DECREASED
     Route: 048
     Dates: start: 201304
  9. CALCIUM [Concomitant]
     Indication: THYROID DISORDER
     Route: 048
     Dates: start: 201304
  10. FLEXERIL [Concomitant]
     Indication: MUSCLE SPASMS
     Route: 048
     Dates: start: 201304

REACTIONS (10)
  - Hypocalcaemia [Unknown]
  - Thyroid cancer [Unknown]
  - Gastrooesophageal reflux disease [Unknown]
  - Dysphonia [Unknown]
  - Parathyroid disorder [Unknown]
  - Dyspnoea [Unknown]
  - Erosive oesophagitis [Unknown]
  - Sleep disorder due to a general medical condition [Unknown]
  - Goitre [Unknown]
  - Intentional drug misuse [Unknown]
